FAERS Safety Report 5759667-8 (Version None)
Quarter: 2008Q2

REPORT INFORMATION
  Report Type: 
  Country: None (occurrence: None)
  Receive Date: 20080605
  Receipt Date: 20080527
  Transmission Date: 20081010
  Serious: Yes (Hospitalization)
  Sender: FDA-Public Use
  Company Number: IN-WATSON-2008-03322

PATIENT
  Sex: Female
  Weight: 45 kg

DRUGS (7)
  1. FORTAMET EXTENDED RELEASE (WATSON LABORATORIES) [Suspect]
     Indication: DIABETES MELLITUS
  2. GLYBURIDE [Suspect]
     Indication: DIABETES MELLITUS
     Dosage: UNK
     Route: 048
     Dates: start: 20020206, end: 20030115
  3. LASOFOXIFENE [Suspect]
     Indication: OSTEOPOROSIS
     Dosage: 0.5 MG, DAILY
     Route: 048
     Dates: start: 20020225
  4. CALCIUM W/VITAMIN D                /00188401/ [Concomitant]
     Indication: DRUG USE FOR UNKNOWN INDICATION
     Dosage: UNK
     Route: 048
     Dates: start: 20020102, end: 20030115
  5. NITROFURAZONE [Suspect]
     Indication: DRUG USE FOR UNKNOWN INDICATION
     Dosage: UNK
     Route: 048
     Dates: start: 20020619, end: 20030115
  6. LOSARTAN POTASSIUM [Concomitant]
     Indication: DRUG USE FOR UNKNOWN INDICATION
     Dosage: UNK
     Route: 048
     Dates: start: 20020619, end: 20030115
  7. VITAMIN B COMPLEX                  /00003501/ [Concomitant]
     Indication: DRUG USE FOR UNKNOWN INDICATION
     Dosage: UNK
     Dates: start: 20011225, end: 20030115

REACTIONS (2)
  - HYPOGLYCAEMIA [None]
  - LOSS OF CONSCIOUSNESS [None]
